FAERS Safety Report 8008412-4 (Version None)
Quarter: 2011Q4

REPORT INFORMATION
  Report Type: 
  Country: None (occurrence: None)
  Receive Date: 20111227
  Receipt Date: 20111216
  Transmission Date: 20120403
  Serious: Yes (Death, Hospitalization, Other)
  Sender: FDA-Public Use
  Company Number: US-ROCHE-1018920

PATIENT
  Age: 59 Year
  Sex: Male
  Weight: 52.7 kg

DRUGS (3)
  1. DOCETAXEL [Suspect]
     Indication: HEAD AND NECK CANCER
     Dosage: OVER 1 HR, DAY 1
     Route: 042
     Dates: start: 20111024
  2. CISPLATIN [Suspect]
     Indication: HEAD AND NECK CANCER
     Dosage: OVER 1-2 HRS, DAY 1
     Route: 042
     Dates: start: 20111024
  3. AVASTIN [Suspect]
     Indication: HEAD AND NECK CANCER
     Dosage: OVER 30-90 MIN, DAY 1
     Route: 042
     Dates: start: 20111024

REACTIONS (10)
  - HYPOALBUMINAEMIA [None]
  - HYPOCALCAEMIA [None]
  - ANAEMIA [None]
  - LUNG INFECTION [None]
  - HYPONATRAEMIA [None]
  - HYPERGLYCAEMIA [None]
  - RESPIRATORY DISTRESS [None]
  - RESPIRATORY FAILURE [None]
  - PSEUDOMONAS INFECTION [None]
  - PNEUMOTHORAX [None]
